FAERS Safety Report 6537539-9 (Version None)
Quarter: 2010Q1

REPORT INFORMATION
  Report Type: 
  Country: None (occurrence: None)
  Receive Date: 20100114
  Receipt Date: 20100104
  Transmission Date: 20100710
  Serious: Yes (Hospitalization, Other)
  Sender: FDA-Public Use
  Company Number: FR-ELI_LILLY_AND_COMPANY-FR201001000116

PATIENT
  Sex: Female

DRUGS (7)
  1. ZYPREXA [Suspect]
     Dosage: 10 MG, DAILY (1/D)
     Route: 048
     Dates: start: 20081201, end: 20090401
  2. ATHYMIL [Concomitant]
     Dosage: 10 MG, 3/D
     Dates: end: 20090401
  3. MODOPAR [Concomitant]
     Dosage: 125 MG, OTHER EVERY THREE DAYS
     Dates: end: 20090401
  4. TERCIAN [Concomitant]
     Dosage: 25 MG, DAILY (1/D)
     Route: 048
     Dates: end: 20090401
  5. DOLIPRANE [Concomitant]
     Dates: end: 20090401
  6. DUPHALAC [Concomitant]
     Dates: end: 20090401
  7. LEVOTHYROXINE SODIUM [Concomitant]
     Dosage: 50 UG, DAILY (1/D)
     Dates: end: 20090401

REACTIONS (9)
  - CHOLELITHIASIS [None]
  - CONSCIOUSNESS FLUCTUATING [None]
  - CYTOLYTIC HEPATITIS [None]
  - ELECTROENCEPHALOGRAM ABNORMAL [None]
  - EXTRAPYRAMIDAL DISORDER [None]
  - FAECALOMA [None]
  - GENERAL PHYSICAL HEALTH DETERIORATION [None]
  - HEPATOJUGULAR REFLUX [None]
  - PULMONARY EMBOLISM [None]
